FAERS Safety Report 20428168 (Version 1)
Quarter: 2022Q1

REPORT INFORMATION
  Report Type: Spontaneous
  Country: NL (occurrence: NL)
  Receive Date: 20220204
  Receipt Date: 20220204
  Transmission Date: 20220423
  Serious: Yes (Other)
  Sender: FDA-Public Use
  Company Number: NL-LRB-00779082

PATIENT
  Age: 48 Year
  Sex: Male
  Weight: 127 kg

DRUGS (7)
  1. LISINOPRIL [Suspect]
     Active Substance: LISINOPRIL
     Indication: Hypertension
     Dosage: 1 DOSAGE FORM, ONCE A DAY (1 X PER DAY)
     Route: 065
     Dates: start: 2017, end: 20180312
  2. ALBUTEROL [Concomitant]
     Active Substance: ALBUTEROL
     Indication: Product used for unknown indication
     Dosage: UNK (AEROSOL, 100 ?G/DOSIS (MICROGRAM PER DOSIS))
     Route: 065
  3. OMEPRAZOLE [Concomitant]
     Active Substance: OMEPRAZOLE
     Indication: Product used for unknown indication
     Dosage: UNK (GASTRO-RESISTANT CAPSULE, 40 MG (MILLIGRAMS))
     Route: 065
  4. FORMOTEROL [Concomitant]
     Active Substance: FORMOTEROL
     Indication: Product used for unknown indication
     Dosage: UNK (AEROSOL, 12 ?G/DOSIS (MICROGRAM PER DOSIS))
     Route: 065
  5. LEVOCETIRIZINE [Concomitant]
     Active Substance: LEVOCETIRIZINE
     Indication: Product used for unknown indication
     Dosage: UNK (FILM-COATED TABLET, 5 MG (MILLIGRAMS))
     Route: 065
  6. FLUTICASONE FUROATE [Concomitant]
     Active Substance: FLUTICASONE FUROATE
     Indication: Product used for unknown indication
     Dosage: UNK (NASAL SPRAY, 27.5 ?G/DOSE (MICROGRAMS PER DOSE))
     Route: 065
  7. HYDROCHLOROTHIAZIDE [Concomitant]
     Active Substance: HYDROCHLOROTHIAZIDE
     Indication: Product used for unknown indication
     Dosage: UNK (TABLET, 150/12,5 MG (MILLIGRAM))
     Route: 065

REACTIONS (2)
  - Angioedema [Recovered/Resolved]
  - Lip swelling [Recovered/Resolved]

NARRATIVE: CASE EVENT DATE: 20180310
